FAERS Safety Report 4691451-9 (Version None)
Quarter: 2005Q2

REPORT INFORMATION
  Report Type: 
  Country: None (occurrence: None)
  Receive Date: 20050613
  Receipt Date: 20050511
  Transmission Date: 20051028
  Serious: Yes (Hospitalization)
  Sender: FDA-Public Use
  Company Number: S05-USA-02549-01

PATIENT
  Age: 48 Year
  Sex: Female

DRUGS (5)
  1. LEXAPRO [Suspect]
     Indication: ANXIETY
     Dosage: 40 MG QD PO
     Route: 048
     Dates: start: 20030101
  2. LEXAPRO [Suspect]
     Indication: DEPRESSION
     Dosage: 40 MG QD PO
     Route: 048
     Dates: start: 20030101
  3. MORPHINE [Suspect]
     Indication: PAIN
     Dates: start: 20040701, end: 20040701
  4. BEXTRA [Suspect]
     Indication: ARTHRITIS
     Dates: end: 20050323
  5. ZONEGRAN [Suspect]
     Indication: MIGRAINE
     Dates: end: 20050301

REACTIONS (4)
  - ANKLE FRACTURE [None]
  - FALL [None]
  - HYPERSENSITIVITY [None]
  - RASH [None]
